FAERS Safety Report 5704091-7 (Version None)
Quarter: 2008Q2

REPORT INFORMATION
  Report Type: 
  Country: None (occurrence: None)
  Receive Date: 20080414
  Receipt Date: 20080319
  Transmission Date: 20081010
  Serious: No
  Sender: FDA-Public Use
  Company Number: US-BAYER-200818052NA

PATIENT
  Age: 46 Year
  Sex: Female

DRUGS (1)
  1. MAGNEVIST [Suspect]
     Indication: NUCLEAR MAGNETIC RESONANCE IMAGING
     Dosage: TOTAL DAILY DOSE: 13 ML  UNIT DOSE: 20 ML
     Dates: start: 20080315, end: 20080315

REACTIONS (3)
  - EYE SWELLING [None]
  - HYPERSENSITIVITY [None]
  - RASH [None]
